FAERS Safety Report 20737029 (Version 4)
Quarter: 2022Q3

REPORT INFORMATION
  Report Type: Report from Study
  Country: US (occurrence: None)
  Receive Date: 20220421
  Receipt Date: 20220705
  Transmission Date: 20221027
  Serious: Yes (Life-Threatening)
  Sender: FDA-Public Use
  Company Number: US-ROCHE-3078713

PATIENT
  Age: 86 Year
  Sex: Male
  Weight: 59.6 kg

DRUGS (12)
  1. ATEZOLIZUMAB [Suspect]
     Active Substance: ATEZOLIZUMAB
     Indication: Hepatic cancer
     Dosage: DOSE LAST STUDY DRUG ADMIN PRIOR AE IS 1200 MG ON 18-MAR-2022 RECEIVED MOST RECENT DOSE
     Route: 042
     Dates: start: 20201208
  2. BEVACIZUMAB [Suspect]
     Active Substance: BEVACIZUMAB
     Indication: Hepatic cancer
     Dosage: DOSE LAST STUDY DRUG ADMIN PRIOR AE IS 844.5 MG. ON 18-MAR-2022 RECEIVED MOST RECENT DOSE
     Route: 042
     Dates: start: 20201208
  3. METOPROLOL [Concomitant]
     Active Substance: METOPROLOL
     Indication: Hypertension
     Dosage: YES
     Dates: start: 20201020
  4. SPIRONOLACTONE [Concomitant]
     Active Substance: SPIRONOLACTONE
     Indication: Hypertension
     Dosage: YES
     Dates: start: 20210213
  5. LUMIGAN [Concomitant]
     Active Substance: BIMATOPROST
     Indication: Intraocular pressure test
     Dosage: YES
     Dates: start: 20180714
  6. MAGNESIUM [Concomitant]
     Active Substance: MAGNESIUM
     Dosage: GIVEN FOR PROPHYLAXIS IS YES ;ONGOING: YES
     Dates: start: 2019
  7. MINERALS\VITAMINS [Concomitant]
     Active Substance: MINERALS\VITAMINS
     Dosage: GIVEN FOR PROPHYLAXIS IS YES ;ONGOING: YES
     Dates: start: 2005
  8. VITAMIN D3 [Concomitant]
     Active Substance: CHOLECALCIFEROL
     Dosage: GIVEN FOR PROPHYLAXIS IS YES ;ONGOING: YES
     Dates: start: 2005
  9. BENICAR [Concomitant]
     Active Substance: OLMESARTAN MEDOXOMIL
     Indication: Hypertension
     Route: 048
     Dates: start: 20210314
  10. AMLODIPINE [Concomitant]
     Active Substance: AMLODIPINE BESYLATE
     Indication: Hypertension
     Route: 048
     Dates: start: 20210507
  11. ATIVAN [Concomitant]
     Active Substance: LORAZEPAM
     Indication: Hypertension
     Route: 048
     Dates: start: 20210321
  12. DELSYM [Concomitant]
     Active Substance: DEXTROMETHORPHAN
     Indication: Cough
     Route: 048
     Dates: start: 20210622

REACTIONS (1)
  - Haemorrhage intracranial [Not Recovered/Not Resolved]

NARRATIVE: CASE EVENT DATE: 20220415
